FAERS Safety Report 8417039-1 (Version None)
Quarter: 2012Q2

REPORT INFORMATION
  Report Type: 
  Country: None (occurrence: None)
  Receive Date: 20120606
  Receipt Date: 20120531
  Transmission Date: 20120825
  Serious: Yes (Hospitalization)
  Sender: FDA-Public Use
  Company Number: FR-PFIZER INC-2012130710

PATIENT
  Age: 82 Year
  Sex: Female

DRUGS (7)
  1. IBUPROFEN (ADVIL) [Suspect]
     Indication: ARTHRALGIA
     Dosage: UNK
     Route: 048
     Dates: start: 20120216, end: 20120223
  2. PENTOXIFYLLINE [Interacting]
     Indication: ATRIAL FIBRILLATION
     Dosage: 20 MG, 1X/DAY
     Route: 048
  3. PERINDOPRIL ERBUMINE [Concomitant]
     Indication: HYPERTENSION
     Dosage: 5 MG, 1X/DAY
     Route: 048
  4. BISOPROLOL FUMARATE [Concomitant]
     Indication: HYPERTENSION
     Dosage: 5 MG, 1X/DAY
     Route: 048
  5. ACETAMINOPHEN [Interacting]
     Indication: ARTHRALGIA
     Dosage: UNK
     Route: 048
     Dates: start: 20120216, end: 20120223
  6. ASPIRIN [Interacting]
     Indication: ARTHRALGIA
     Dosage: 3 G, 1X/DAY
     Route: 048
     Dates: start: 20120216, end: 20120223
  7. LASIX [Concomitant]
     Indication: HYPERTENSION
     Dosage: 40 MG, 1X/DAY
     Route: 048

REACTIONS (3)
  - INTERNATIONAL NORMALISED RATIO INCREASED [None]
  - DRUG INTERACTION [None]
  - HAEMARTHROSIS [None]
